FAERS Safety Report 6723668-3 (Version None)
Quarter: 2010Q2

REPORT INFORMATION
  Report Type: 
  Country: None (occurrence: None)
  Receive Date: 20100513
  Receipt Date: 20100305
  Transmission Date: 20101027
  Serious: Yes (Other)
  Sender: FDA-Public Use
  Company Number: SE-ROCHE-639500

PATIENT
  Sex: Female
  Weight: 60.6 kg

DRUGS (6)
  1. BEVACIZUMAB [Suspect]
     Dosage: DOSE BLINDED, FORM: INFUSION, LAST DOSE PRIOR TO SAE: 27 MAY 2009
     Route: 042
     Dates: start: 20061221, end: 20090714
  2. PACLITAXEL [Suspect]
     Indication: DRUG USE FOR UNKNOWN INDICATION
     Dosage: FORM: INFUSION, FREQUENCY: ONCE DAY 1, 8, 15 28 DAY CYCLE, LAST DOSE PRIOR TO SAE: 27 MAY 2009
     Route: 042
     Dates: start: 20071129, end: 20090603
  3. PACLITAXEL [Suspect]
     Route: 042
     Dates: start: 20090623
  4. RANITIDINE HCL [Concomitant]
     Dates: start: 20081014
  5. FUROSEMID [Concomitant]
     Dates: start: 20081014
  6. ALLOPURINOL [Concomitant]
     Dates: start: 20090527, end: 20090604

REACTIONS (1)
  - RENAL IMPAIRMENT [None]
